FAERS Safety Report 9778154 (Version 1)
Quarter: 2013Q4

REPORT INFORMATION
  Report Type: Spontaneous
  Country: US (occurrence: US)
  Receive Date: 20131223
  Receipt Date: 20131223
  Transmission Date: 20140711
  Serious: No
  Sender: FDA-Public Use
  Company Number: US-009507513-1312USA009930

PATIENT
  Age: 80 Year
  Sex: Female

DRUGS (6)
  1. REMERON [Suspect]
     Dosage: 30 MG, QD STRENGTH 30
     Route: 048
     Dates: start: 20131219, end: 20131219
  2. PHENOBARBITAL [Concomitant]
  3. LOSARTAN POTASSIUM TABLETS [Concomitant]
  4. AMIODARONE [Concomitant]
  5. WARFARIN SODIUM [Concomitant]
  6. LEVOTHYROXINE SODIUM [Concomitant]

REACTIONS (3)
  - Feeling abnormal [Unknown]
  - Dizziness [Unknown]
  - Somnolence [Unknown]
